FAERS Safety Report 25427281 (Version 1)
Quarter: 2025Q2

REPORT INFORMATION
  Report Type: Spontaneous
  Country: CN (occurrence: CN)
  Receive Date: 20250612
  Receipt Date: 20250612
  Transmission Date: 20250717
  Serious: Yes (Life-Threatening)
  Sender: AMGEN
  Company Number: CN-AMGEN-CHNSP2025113304

PATIENT
  Age: 58 Year
  Sex: Female

DRUGS (6)
  1. CARFILZOMIB [Suspect]
     Active Substance: CARFILZOMIB
     Indication: Plasma cell myeloma
     Route: 040
     Dates: start: 20250506, end: 20250507
  2. CARFILZOMIB [Suspect]
     Active Substance: CARFILZOMIB
     Route: 040
     Dates: start: 20250513, end: 20250514
  3. DEXTROSE [Concomitant]
     Active Substance: DEXTROSE MONOHYDRATE
     Dosage: 100 MILLILITER, QD SOLVENT, IVGTT
     Route: 040
     Dates: start: 20250506, end: 20250507
  4. DEXTROSE [Concomitant]
     Active Substance: DEXTROSE MONOHYDRATE
     Dosage: 100 MILLILITER, QD SOLVENT, IVGTT
     Route: 040
     Dates: start: 20250513, end: 20250514
  5. STERILE WATER [Concomitant]
     Active Substance: WATER
     Route: 040
     Dates: start: 20250506, end: 20250507
  6. STERILE WATER [Concomitant]
     Active Substance: WATER
     Route: 040
     Dates: start: 20250513, end: 20250514

REACTIONS (2)
  - Platelet count decreased [Recovering/Resolving]
  - Anaemia [Recovering/Resolving]

NARRATIVE: CASE EVENT DATE: 20250523
